FAERS Safety Report 6271826-7 (Version None)
Quarter: 2009Q3

REPORT INFORMATION
  Report Type: 
  Country: None (occurrence: None)
  Receive Date: 20090715
  Receipt Date: 20090630
  Transmission Date: 20100115
  Serious: Yes (Death)
  Sender: FDA-Public Use
  Company Number: ABX85-09-0160

PATIENT
  Age: 57 Year
  Sex: Female
  Weight: 87.9978 kg

DRUGS (1)
  1. ABRAXANE [Suspect]
     Indication: PANCREATIC CARCINOMA
     Dosage: (100 MG/M2),INTRAVENOUS
     Route: 042
     Dates: start: 20090319

REACTIONS (5)
  - BACK PAIN [None]
  - BACTERIAL INFECTION [None]
  - CULTURE URINE POSITIVE [None]
  - DISEASE PROGRESSION [None]
  - NAUSEA [None]
